FAERS Safety Report 24960569 (Version 1)
Quarter: 2025Q1

REPORT INFORMATION
  Report Type: Spontaneous
  Country: ES (occurrence: ES)
  Receive Date: 20250212
  Receipt Date: 20250212
  Transmission Date: 20250408
  Serious: Yes (Hospitalization)
  Sender: TEVA
  Company Number: None

PATIENT
  Age: 92 Year
  Sex: Male
  Weight: 49 kg

DRUGS (2)
  1. AMLODIPINE\HYDROCHLOROTHIAZIDE\VALSARTAN [Suspect]
     Active Substance: AMLODIPINE\HYDROCHLOROTHIAZIDE\VALSARTAN
     Indication: Hypertension
     Dosage: 1 TABLET PER DAY, AMLODIPINE/VALSARTAN/HYDROCHLOROTHIAZIDE TEVA 10 MG/320 MG/25 MG FILM-COATED TA...
     Route: 048
     Dates: start: 20171212, end: 20241014
  2. ESOMEPRAZOLE [Suspect]
     Active Substance: ESOMEPRAZOLE
     Indication: Gastritis
     Dosage: 50 TABLETS
     Route: 048
     Dates: start: 20210625, end: 202410

REACTIONS (2)
  - Hypomagnesaemia [Recovering/Resolving]
  - Hypophosphataemia [Recovered/Resolved]

NARRATIVE: CASE EVENT DATE: 20241001
